FAERS Safety Report 6608909-5 (Version None)
Quarter: 2010Q1

REPORT INFORMATION
  Report Type: 
  Country: None (occurrence: None)
  Receive Date: 20100301
  Receipt Date: 20100219
  Transmission Date: 20100710
  Serious: Yes (Other)
  Sender: FDA-Public Use
  Company Number: US-PFIZER INC-2010022242

PATIENT
  Sex: Male
  Weight: 81.633 kg

DRUGS (2)
  1. LIPITOR [Suspect]
     Indication: BLOOD CHOLESTEROL INCREASED
     Dosage: UNK
     Route: 048
  2. PRILOSEC [Interacting]
     Indication: DYSPEPSIA
     Dosage: UNK

REACTIONS (2)
  - DRUG INTERACTION [None]
  - MYALGIA [None]
